FAERS Safety Report 5414604-0 (Version None)
Quarter: 2007Q3

REPORT INFORMATION
  Report Type: 
  Country: None (occurrence: None)
  Receive Date: 20070713
  Receipt Date: 20070514
  Transmission Date: 20080115
  Serious: Yes (Hospitalization, Other)
  Sender: FDA-Public Use
  Company Number: US-JNJFOC-20061004522

PATIENT
  Age: 34 Year
  Sex: Female
  Weight: 72 kg

DRUGS (3)
  1. ORTHO EVRA [Suspect]
     Indication: AMENORRHOEA
     Dosage: TRANSDERMAL
     Route: 062
     Dates: start: 20040901, end: 20040901
  2. ORTHO EVRA [Suspect]
     Indication: PREMATURE MENOPAUSE
     Dosage: TRANSDERMAL
     Route: 062
     Dates: start: 20040901, end: 20040901
  3. IRON SUPPLEMENT (IRON) [Concomitant]

REACTIONS (1)
  - PULMONARY EMBOLISM [None]
